FAERS Safety Report 24440691 (Version 1)
Quarter: 2024Q4

REPORT INFORMATION
  Report Type: Report from Study
  Country: US (occurrence: US)
  Receive Date: 20241016
  Receipt Date: 20241016
  Transmission Date: 20250115
  Serious: Yes (Other)
  Sender: JOHNSON AND JOHNSON
  Company Number: US-JNJFOC-20241042494

PATIENT

DRUGS (1)
  1. TALVEY [Suspect]
     Active Substance: TALQUETAMAB-TGVS
     Indication: Plasma cell myeloma refractory
     Route: 065

REACTIONS (8)
  - Cytokine release syndrome [Unknown]
  - Dysgeusia [Unknown]
  - Dry mouth [Unknown]
  - Weight decreased [Unknown]
  - Nail disorder [Unknown]
  - Rash [Unknown]
  - Skin exfoliation [Unknown]
  - Dry skin [Unknown]
